FAERS Safety Report 21542723 (Version 1)
Quarter: 2022Q4

REPORT INFORMATION
  Report Type: Spontaneous
  Country: CA (occurrence: CA)
  Receive Date: 20221102
  Receipt Date: 20221102
  Transmission Date: 20230112
  Serious: Yes (Other)
  Sender: FDA-Public Use
  Company Number: CA-002147023-NVSC2022CA242733

PATIENT
  Age: 9 Year
  Sex: Female

DRUGS (4)
  1. SOMATROPIN [Suspect]
     Active Substance: SOMATROPIN
     Indication: Turner^s syndrome
     Dosage: 850 UG
     Route: 058
  2. CHOLECALCIFEROL [Concomitant]
     Active Substance: CHOLECALCIFEROL
     Indication: Product used for unknown indication
     Dosage: UNK
     Route: 065
  3. SYNTHROID [Concomitant]
     Active Substance: LEVOTHYROXINE SODIUM
     Indication: Hypothyroidism
     Dosage: UNK, QD
     Route: 048
  4. VITAMIN D3 [Concomitant]
     Active Substance: CHOLECALCIFEROL
     Indication: Product used for unknown indication
     Dosage: 800 ML, QD
     Route: 048

REACTIONS (4)
  - Humerus fracture [Not Recovered/Not Resolved]
  - Constipation [Not Recovered/Not Resolved]
  - Fall [Not Recovered/Not Resolved]
  - Primary hypothyroidism [Not Recovered/Not Resolved]
